FAERS Safety Report 8401399-1 (Version None)
Quarter: 2012Q2

REPORT INFORMATION
  Report Type: 
  Country: None (occurrence: None)
  Receive Date: 20120601
  Receipt Date: 20120523
  Transmission Date: 20120825
  Serious: Yes (Hospitalization, Other)
  Sender: FDA-Public Use
  Company Number: BR-SANOFI-AVENTIS-2011SA065685

PATIENT
  Age: 30 Year
  Sex: Female
  Weight: 55.5 kg

DRUGS (6)
  1. ACETYLSALICYLIC ACID SRT [Concomitant]
     Indication: THROMBOSIS
     Route: 048
     Dates: start: 20110101, end: 20111001
  2. LANTUS [Suspect]
     Indication: TYPE 1 DIABETES MELLITUS
     Dosage: START DATE: ABOUT 6 YEARS AGO
     Route: 058
  3. FOLIC ACID [Concomitant]
     Indication: THROMBOSIS
     Route: 048
     Dates: start: 20110101, end: 20111001
  4. HUMALOG [Concomitant]
     Indication: TYPE 1 DIABETES MELLITUS
     Dosage: 6 IU IN THE MORNING + 8 IU AT LUNCH + 4 IU AT DINNER
     Dates: start: 20040101
  5. AUTOPEN 24 [Suspect]
     Indication: DEVICE THERAPY
  6. ASCORBIC ACID [Concomitant]
     Indication: THROMBOSIS
     Route: 048
     Dates: start: 20110101, end: 20111001

REACTIONS (6)
  - RENAL DISORDER [None]
  - NOSOCOMIAL INFECTION [None]
  - INJECTION SITE HAEMORRHAGE [None]
  - THROMBOSIS [None]
  - RENAL FAILURE [None]
  - FISTULA [None]
